FAERS Safety Report 9894135 (Version 2)
Quarter: 2014Q1

REPORT INFORMATION
  Report Type: Spontaneous
  Country: US (occurrence: US)
  Receive Date: 20140213
  Receipt Date: 20140326
  Transmission Date: 20141002
  Serious: No
  Sender: FDA-Public Use
  Company Number: US-PFIZER INC-2014039984

PATIENT
  Age: 44 Year
  Sex: Male

DRUGS (4)
  1. NEURONTIN [Suspect]
     Dosage: 600 MG, 3X/DAY
  2. ZOLOFT [Suspect]
     Dosage: 100 MG, 1X/DAY
  3. TRAZODONE HYDROCHLORIDE [Suspect]
     Dosage: UNK
  4. FLEXERIL [Suspect]
     Dosage: 10 MG, AS NEEDED

REACTIONS (2)
  - Drug hypersensitivity [Unknown]
  - Drug ineffective [Unknown]
